FAERS Safety Report 15008727 (Version 3)
Quarter: 2018Q3

REPORT INFORMATION
  Report Type: Spontaneous
  Country: US (occurrence: US)
  Receive Date: 20180613
  Receipt Date: 20180705
  Transmission Date: 20181010
  Serious: Yes (Hospitalization, Disabling, Other)
  Sender: FDA-Public Use
  Company Number: US-OTSUKA-US-2015-10476

PATIENT
  Age: 32 Year
  Sex: Female

DRUGS (8)
  1. ABILIFY MAINTENA [Suspect]
     Active Substance: ARIPIPRAZOLE
     Indication: BIPOLAR DISORDER
  2. ABILIFY [Suspect]
     Active Substance: ARIPIPRAZOLE
     Indication: SCHIZOPHRENIA
  3. ABILIFY MAINTENA [Suspect]
     Active Substance: ARIPIPRAZOLE
     Indication: SCHIZOAFFECTIVE DISORDER
     Dosage: 400 MG, QM
     Route: 030
  4. ABILIFY [Suspect]
     Active Substance: ARIPIPRAZOLE
     Indication: PSYCHOTIC DISORDER
     Dosage: 15 MG, QD
     Route: 065
     Dates: end: 2017
  5. ABILIFY MAINTENA [Suspect]
     Active Substance: ARIPIPRAZOLE
     Indication: PSYCHOTIC DISORDER
  6. ABILIFY MAINTENA [Suspect]
     Active Substance: ARIPIPRAZOLE
     Indication: SCHIZOPHRENIA
  7. ABILIFY [Suspect]
     Active Substance: ARIPIPRAZOLE
     Indication: BIPOLAR DISORDER
     Dosage: 10 MG, QD
     Route: 065
     Dates: start: 2012
  8. BRINTELLIX [Concomitant]
     Active Substance: VORTIOXETINE HYDROBROMIDE
     Indication: DEPRESSION
     Dosage: UNK
     Route: 065

REACTIONS (27)
  - Suicide attempt [Recovered/Resolved]
  - Compulsive sexual behaviour [Recovered/Resolved]
  - Compulsive shopping [Unknown]
  - Treatment noncompliance [Unknown]
  - Emotional distress [Unknown]
  - Sexual dysfunction [Recovered/Resolved]
  - Injury [Unknown]
  - Fatigue [Recovering/Resolving]
  - Bankruptcy [Unknown]
  - Economic problem [Unknown]
  - Disability [Unknown]
  - Anhedonia [Unknown]
  - Eating disorder [Recovered/Resolved]
  - Anxiety [Unknown]
  - Inappropriate schedule of drug administration [Unknown]
  - Suicidal ideation [Recovered/Resolved]
  - Pain [Unknown]
  - Condition aggravated [Unknown]
  - Sluggishness [Recovering/Resolving]
  - Somnolence [Recovering/Resolving]
  - Asthenia [Recovering/Resolving]
  - Loss of employment [Unknown]
  - Drug dose omission [Unknown]
  - Off label use [Unknown]
  - Mental disorder [Unknown]
  - Dizziness [Recovered/Resolved]
  - Gambling disorder [Recovered/Resolved]

NARRATIVE: CASE EVENT DATE: 20130425
